FAERS Safety Report 20618095 (Version 2)
Quarter: 2022Q2

REPORT INFORMATION
  Report Type: Spontaneous
  Country: US (occurrence: US)
  Receive Date: 20220321
  Receipt Date: 20220405
  Transmission Date: 20220721
  Serious: Yes (Hospitalization, Other)
  Sender: FDA-Public Use
  Company Number: US-INCYTE CORPORATION-2022IN002578

PATIENT

DRUGS (1)
  1. JAKAFI [Suspect]
     Active Substance: RUXOLITINIB
     Indication: Myelofibrosis
     Dosage: 5 MILLIGRAM (DAILY EVERY OTHER DAY, ALTERNATING TWICE DAILY EVERY OTHER DAY)
     Route: 048
     Dates: start: 201712

REACTIONS (3)
  - Cellulitis [Unknown]
  - Venous injury [Unknown]
  - Procedural haemorrhage [Unknown]
